FAERS Safety Report 8308009-2 (Version None)
Quarter: 2012Q2

REPORT INFORMATION
  Report Type: 
  Country: None (occurrence: None)
  Receive Date: 20120424
  Receipt Date: 20120420
  Transmission Date: 20120825
  Serious: Yes (Hospitalization)
  Sender: FDA-Public Use
  Company Number: HR-GLAXOSMITHKLINE-B0797455A

PATIENT
  Age: 85 Year
  Sex: Female

DRUGS (7)
  1. PEPTORAN [Concomitant]
     Indication: GASTRITIS
     Dosage: 300MG PER DAY
     Route: 042
  2. LACIPIL [Concomitant]
     Indication: HYPERTENSION
     Dosage: 4MG PER DAY
     Route: 048
  3. LEVOTHYROXINE SODIUM [Concomitant]
     Indication: HYPOTHYROIDISM
     Dosage: 125MCG PER DAY
     Route: 048
  4. DULCOLAX [Concomitant]
     Indication: CONSTIPATION
     Dosage: 10MG AS REQUIRED
     Route: 054
  5. PAROXETINE HYDROCHLORIDE [Suspect]
     Indication: DEPRESSION
     Dosage: 20MG PER DAY
     Route: 048
     Dates: start: 20120315, end: 20120328
  6. ALPRAZOLAM [Concomitant]
     Indication: DEPRESSION
     Route: 048
  7. TINIDIL [Concomitant]
     Dosage: 5MG AS REQUIRED
     Route: 060

REACTIONS (5)
  - HYPOKALAEMIA [None]
  - VOMITING [None]
  - GENERAL PHYSICAL HEALTH DETERIORATION [None]
  - ALTERED STATE OF CONSCIOUSNESS [None]
  - HYPONATRAEMIA [None]
